FAERS Safety Report 7307647-3 (Version None)
Quarter: 2011Q1

REPORT INFORMATION
  Report Type: 
  Country: None (occurrence: None)
  Receive Date: 20110223
  Receipt Date: 20110209
  Transmission Date: 20110831
  Serious: Yes (Other)
  Sender: FDA-Public Use
  Company Number: TW-PFIZER INC-2011035542

PATIENT
  Age: 56 Year
  Sex: Male

DRUGS (2)
  1. AMIODARONE HCL [Suspect]
     Dosage: 200 MG, 2X/DAY
     Route: 048
  2. AMIODARONE HCL [Suspect]
     Indication: ARRHYTHMIA
     Dosage: 200 MG, 2X/DAY
     Route: 048

REACTIONS (6)
  - PAPILLOEDEMA [None]
  - OPTIC NEUROPATHY [None]
  - MACULOPATHY [None]
  - VISUAL ACUITY REDUCED [None]
  - KERATOPATHY [None]
  - PUPILLARY REFLEX IMPAIRED [None]
